FAERS Safety Report 14719687 (Version 3)
Quarter: 2018Q3

REPORT INFORMATION
  Report Type: Report from Study
  Country: DE (occurrence: DE)
  Receive Date: 20180405
  Receipt Date: 20180814
  Transmission Date: 20181010
  Serious: Yes (Death, Life-Threatening, Hospitalization)
  Sender: FDA-Public Use
  Company Number: DE-TEVA-2017-DE-837513

PATIENT
  Age: 55 Year
  Sex: Male
  Weight: 85 kg

DRUGS (2)
  1. DOCETAXEL. [Suspect]
     Active Substance: DOCETAXEL
     Indication: ADENOCARCINOMA
     Dosage: 75 MG/M2 DAILY;
     Route: 042
     Dates: start: 20160803, end: 20160914
  2. VARGATEF [Suspect]
     Active Substance: NINTEDANIB
     Indication: ADENOCARCINOMA
     Dosage: 400 MILLIGRAM DAILY;
     Route: 048
     Dates: start: 20160804, end: 20161004

REACTIONS (10)
  - General physical health deterioration [Fatal]
  - Dermatitis acneiform [Fatal]
  - Vomiting [Fatal]
  - Neutrophil count decreased [Fatal]
  - Nausea [Fatal]
  - Nausea [Fatal]
  - Vomiting [Fatal]
  - White blood cell count decreased [Fatal]
  - Diarrhoea [Fatal]
  - Diarrhoea [Fatal]

NARRATIVE: CASE EVENT DATE: 20160808
